FAERS Safety Report 7046941-0 (Version None)
Quarter: 2010Q4

REPORT INFORMATION
  Report Type: 
  Country: None (occurrence: None)
  Receive Date: 20101015
  Receipt Date: 20101005
  Transmission Date: 20110411
  Serious: Yes (Hospitalization)
  Sender: FDA-Public Use
  Company Number: ES-BRISTOL-MYERS SQUIBB COMPANY-15330202

PATIENT
  Age: 73 Year
  Sex: Female

DRUGS (10)
  1. METFORMIN HCL [Suspect]
     Indication: TYPE 2 DIABETES MELLITUS
     Dosage: 2550MG
  2. ACENOCOUMAROL [Concomitant]
     Indication: ANTICOAGULANT THERAPY
  3. BISOPROLOL [Concomitant]
  4. TORASEMIDE [Concomitant]
  5. DIGOXIN [Concomitant]
  6. ESCITALOPRAM [Concomitant]
  7. LORMETAZEPAM [Concomitant]
  8. TERBUTALINE SULFATE [Concomitant]
  9. TIOTROPIUM BROMIDE [Concomitant]
  10. INSULIN GLARGINE [Concomitant]

REACTIONS (2)
  - HEPATOTOXICITY [None]
  - RENAL FAILURE [None]
